FAERS Safety Report 4755946-1 (Version None)
Quarter: 2005Q3

REPORT INFORMATION
  Report Type: 
  Country: None (occurrence: None)
  Receive Date: 20050830
  Receipt Date: 20050818
  Transmission Date: 20060218
  Serious: Yes (Hospitalization, Other)
  Sender: FDA-Public Use
  Company Number: JP-BRISTOL-MYERS SQUIBB COMPANY-13089412

PATIENT
  Age: 62 Year
  Sex: Male

DRUGS (13)
  1. GATIFLO [Suspect]
     Indication: BRONCHITIS
     Route: 048
     Dates: start: 20050519, end: 20050528
  2. ASPIRIN [Concomitant]
     Route: 048
     Dates: start: 20021011
  3. ALLOPURINOL [Concomitant]
     Route: 048
     Dates: start: 20021011
  4. MARZULENE-S [Concomitant]
     Route: 048
     Dates: start: 20021011, end: 20050529
  5. MUCOSOLVAN [Concomitant]
     Route: 048
     Dates: start: 20050512, end: 20050529
  6. SELBEX [Concomitant]
     Route: 048
     Dates: start: 20040601
  7. CALCIUM CARBONATE [Concomitant]
     Route: 048
  8. PURSENNID [Concomitant]
     Route: 048
     Dates: start: 20021011
  9. LOXONIN [Concomitant]
     Route: 048
     Dates: start: 20040601
  10. OPALMON [Concomitant]
     Route: 048
     Dates: start: 20040601
  11. CYANOCOBALAMIN [Concomitant]
     Route: 048
     Dates: start: 20021011, end: 20050529
  12. CRAVIT [Concomitant]
     Dates: start: 20050423, end: 20050430
  13. KLARICID [Concomitant]
     Dates: start: 20050512, end: 20050518

REACTIONS (2)
  - DEMENTIA [None]
  - DEPRESSED LEVEL OF CONSCIOUSNESS [None]
